FAERS Safety Report 16461986 (Version 1)
Quarter: 2019Q2

REPORT INFORMATION
  Report Type: Spontaneous
  Country: GB (occurrence: GB)
  Receive Date: 20190621
  Receipt Date: 20190621
  Transmission Date: 20190711
  Serious: Yes (Other)
  Sender: FDA-Public Use
  Company Number: GB-TEVA-2019-GB-1066692

PATIENT
  Age: 60 Year
  Sex: Female
  Weight: 119 kg

DRUGS (13)
  1. BUMETANIDE. [Concomitant]
     Active Substance: BUMETANIDE
  2. MORPHINE [Concomitant]
     Active Substance: MORPHINE
     Route: 048
  3. ASCORBIC ACID. [Concomitant]
     Active Substance: ASCORBIC ACID
  4. FEXOFENADINE [Concomitant]
     Active Substance: FEXOFENADINE\FEXOFENADINE HYDROCHLORIDE
  5. RAMIPRIL. [Suspect]
     Active Substance: RAMIPRIL
     Indication: VASODILATATION
     Dosage: 5 MILLIGRAM
     Route: 048
     Dates: start: 20190315, end: 20190424
  6. BISOPROLOL [Concomitant]
     Active Substance: BISOPROLOL
  7. WARFARIN [Concomitant]
     Active Substance: WARFARIN
  8. PARACETAMOL [Concomitant]
     Active Substance: ACETAMINOPHEN
  9. AMILORIDE [Concomitant]
     Active Substance: AMILORIDE
  10. ZINC. [Concomitant]
     Active Substance: ZINC
  11. DIHYDROCODEINE [Concomitant]
     Active Substance: DIHYDROCODEINE
  12. DIGOXIN. [Concomitant]
     Active Substance: DIGOXIN
  13. RANITIDINE. [Concomitant]
     Active Substance: RANITIDINE

REACTIONS (5)
  - Pain [Unknown]
  - Blister [Unknown]
  - Malaise [Unknown]
  - Pemphigoid [Recovered/Resolved]
  - Pruritus [Unknown]
